FAERS Safety Report 5151270-6 (Version None)
Quarter: 2006Q4

REPORT INFORMATION
  Report Type: 
  Country: None (occurrence: None)
  Receive Date: 20061115
  Receipt Date: 20061011
  Transmission Date: 20070319
  Serious: Yes (Hospitalization)
  Sender: FDA-Public Use
  Company Number: GB-GLAXOSMITHKLINE-B0441716A

PATIENT
  Sex: Female

DRUGS (8)
  1. NIQUITIN CQ 21MG [Suspect]
     Indication: SMOKING CESSATION THERAPY
     Dosage: 21MG PER DAY
     Route: 062
     Dates: start: 20060908, end: 20061010
  2. NIQUITIN CQ 14MG [Suspect]
     Indication: SMOKING CESSATION THERAPY
     Route: 062
  3. PERINDOPRIL ERBUMINE [Concomitant]
  4. BENDROFLUMETHIAZIDE [Concomitant]
  5. OMEPRAZOLE [Concomitant]
  6. SALBUTAMOL [Concomitant]
  7. SERETIDE [Concomitant]
  8. ACETAMINOPHEN [Concomitant]

REACTIONS (12)
  - ABDOMINAL PAIN UPPER [None]
  - ABNORMAL DREAMS [None]
  - CONSTIPATION [None]
  - DEPRESSION [None]
  - FEELING ABNORMAL [None]
  - HYPERTENSION [None]
  - INTESTINAL OBSTRUCTION [None]
  - MUSCULAR WEAKNESS [None]
  - NAUSEA [None]
  - POOR QUALITY SLEEP [None]
  - RASH [None]
  - URINARY TRACT INFECTION [None]
